FAERS Safety Report 6307758-5 (Version None)
Quarter: 2009Q3

REPORT INFORMATION
  Report Type: 
  Country: None (occurrence: None)
  Receive Date: 20090812
  Receipt Date: 20090812
  Transmission Date: 20100115
  Serious: Yes (Hospitalization)
  Sender: FDA-Public Use
  Company Number: None

PATIENT
  Age: 35 Year
  Sex: Male
  Weight: 101.9 kg

DRUGS (2)
  1. DAPTOMYCIN [Suspect]
     Indication: ENTEROCOCCAL INFECTION
     Dosage: 1000 MG Q24H IV BOLUS
     Route: 040
     Dates: start: 20090726, end: 20090811
  2. DAPTOMYCIN [Suspect]
     Indication: INTRASPINAL ABSCESS
     Dosage: 1000 MG Q24H IV BOLUS
     Route: 040
     Dates: start: 20090726, end: 20090811

REACTIONS (1)
  - BLOOD CREATINE PHOSPHOKINASE INCREASED [None]
